FAERS Safety Report 7235674-3 (Version None)
Quarter: 2011Q1

REPORT INFORMATION
  Report Type: 
  Country: None (occurrence: None)
  Receive Date: 20110120
  Receipt Date: 20010206
  Transmission Date: 20110831
  Serious: Yes (Death, Other)
  Sender: FDA-Public Use
  Company Number: PHHY2001DE02265

PATIENT

DRUGS (1)
  1. CYCLOSPORINE [Suspect]
     Indication: STEM CELL TRANSPLANT
     Dosage: UNK

REACTIONS (6)
  - PNEUMONIA CYTOMEGALOVIRAL [None]
  - DISTURBANCE IN ATTENTION [None]
  - TREMOR [None]
  - DYSAESTHESIA [None]
  - NEUROTOXICITY [None]
  - ACUTE GRAFT VERSUS HOST DISEASE [None]
